FAERS Safety Report 7167219-0 (Version None)
Quarter: 2010Q4

REPORT INFORMATION
  Report Type: 
  Country: None (occurrence: None)
  Receive Date: 20101216
  Receipt Date: 20101208
  Transmission Date: 20110411
  Serious: Yes (Other)
  Sender: FDA-Public Use
  Company Number: US-SANOFI-AVENTIS-2010SA075417

PATIENT
  Age: 56 Year
  Sex: Male

DRUGS (3)
  1. PLAVIX [Suspect]
     Route: 065
  2. LIPITOR [Suspect]
  3. LISINOPRIL [Suspect]

REACTIONS (1)
  - MEMORY IMPAIRMENT [None]
